FAERS Safety Report 17115962 (Version 1)
Quarter: 2019Q4

REPORT INFORMATION
  Report Type: Spontaneous
  Country: US (occurrence: US)
  Receive Date: 20191204
  Receipt Date: 20191204
  Transmission Date: 20200122
  Serious: No
  Sender: FDA-Public Use
  Company Number: None

PATIENT
  Age: 44 Year
  Sex: Female
  Weight: 63.9 kg

DRUGS (12)
  1. AIMOVIG [Suspect]
     Active Substance: ERENUMAB-AOOE
     Indication: MIGRAINE
  2. MULTIVITAMIN [Concomitant]
     Active Substance: VITAMINS
  3. SUMATRIPTAN. [Concomitant]
     Active Substance: SUMATRIPTAN
  4. SINGULAIR [Concomitant]
     Active Substance: MONTELUKAST SODIUM
  5. BOTOX [Concomitant]
     Active Substance: ONABOTULINUMTOXINA
  6. FISH OIL [Concomitant]
     Active Substance: FISH OIL
  7. MAGNESIUM [Concomitant]
     Active Substance: MAGNESIUM
  8. PROPANOLOL HCL [Concomitant]
     Active Substance: PROPRANOLOL HYDROCHLORIDE
  9. LITHIUM. [Concomitant]
     Active Substance: LITHIUM
  10. KLONOPIN [Concomitant]
     Active Substance: CLONAZEPAM
  11. FIBER [Concomitant]
     Active Substance: PSYLLIUM HUSK
  12. VITAMIN D [Concomitant]
     Active Substance: VITAMIN D NOS

REACTIONS (5)
  - Flatulence [None]
  - Fatigue [None]
  - Diarrhoea [None]
  - Constipation [None]
  - Abdominal distension [None]

NARRATIVE: CASE EVENT DATE: 20191204
